FAERS Safety Report 17038641 (Version 1)
Quarter: 2019Q4

REPORT INFORMATION
  Report Type: Spontaneous
  Country: FR (occurrence: FR)
  Receive Date: 20191115
  Receipt Date: 20191115
  Transmission Date: 20200122
  Serious: Yes (Hospitalization)
  Sender: FDA-Public Use
  Company Number: FR-009507513-1911FRA002233

PATIENT
  Age: 74 Year
  Sex: Female

DRUGS (4)
  1. SIMVASTATIN. [Concomitant]
     Active Substance: SIMVASTATIN
     Dosage: 20 MILLIGRAM, QD
     Route: 048
  2. ISOBAR (METHYCLOTHIAZIDE (+) TRIAMTERENE) [Concomitant]
     Dosage: 1 DOSAGE FORM, QD
     Route: 048
  3. INEXIUM (ESOMEPRAZOLE MAGNESIUM) [Concomitant]
     Active Substance: ESOMEPRAZOLE MAGNESIUM
     Dosage: 1 DOSAGE FORM, QD
     Route: 048
  4. DIPROSTENE [Suspect]
     Active Substance: BETAMETHASONE DIPROPIONATE\BETAMETHASONE SODIUM PHOSPHATE
     Indication: ARTHRALGIA
     Dosage: UNSPECIFIED (FORMULATION: INJECTABLE SOLUTION IN A PRE-FILLED SYRINGE)
     Route: 014
     Dates: start: 20181105, end: 20181220

REACTIONS (5)
  - Cushing^s syndrome [Recovering/Resolving]
  - Hypokalaemia [Recovering/Resolving]
  - Hyperadrenocorticism [Recovering/Resolving]
  - Oedema [Recovering/Resolving]
  - Hyperglycaemia [Recovering/Resolving]

NARRATIVE: CASE EVENT DATE: 201812
